FAERS Safety Report 7109308-2 (Version None)
Quarter: 2010Q4

REPORT INFORMATION
  Report Type: 
  Country: None (occurrence: None)
  Receive Date: 20101117
  Receipt Date: 20101104
  Transmission Date: 20110411
  Serious: Yes (Other)
  Sender: FDA-Public Use
  Company Number: US-MYLANLABS-2010S1020681

PATIENT
  Age: 19 Year
  Sex: Male

DRUGS (3)
  1. ALLOPURINOL [Suspect]
     Indication: COLITIS ULCERATIVE
     Route: 065
  2. AZATHIOPRINE [Suspect]
     Indication: COLITIS ULCERATIVE
     Route: 065
  3. AZATHIOPRINE [Suspect]
     Route: 065

REACTIONS (3)
  - EPSTEIN-BARR VIRAEMIA [None]
  - GRANULOCYTOPENIA [None]
  - LEUKOPENIA [None]
